FAERS Safety Report 4427279-4 (Version None)
Quarter: 2004Q3

REPORT INFORMATION
  Report Type: 
  Country: None (occurrence: None)
  Receive Date: 20040817
  Receipt Date: 20030813
  Transmission Date: 20050211
  Serious: Yes (Hospitalization)
  Sender: FDA-Public Use
  Company Number: 200413049FR

PATIENT
  Age: 46 Year
  Sex: Male

DRUGS (1)
  1. RODOGYL [Suspect]
     Indication: GINGIVITIS
     Route: 048
     Dates: start: 20040618, end: 20040618

REACTIONS (5)
  - MYALGIA [None]
  - PYREXIA [None]
  - RASH [None]
  - RASH ERYTHEMATOUS [None]
  - RASH GENERALISED [None]
